FAERS Safety Report 5698022-6 (Version None)
Quarter: 2008Q2

REPORT INFORMATION
  Report Type: 
  Country: None (occurrence: None)
  Receive Date: 20080408
  Receipt Date: 20080327
  Transmission Date: 20081010
  Serious: Yes (Other)
  Sender: FDA-Public Use
  Company Number: US-WYE-H03436908

PATIENT
  Age: 46 Year
  Sex: Female

DRUGS (5)
  1. PROTONIX [Suspect]
     Dosage: UNKNOWN
     Dates: start: 20050301, end: 20050601
  2. LANSOPRAZOLE [Concomitant]
  3. CLARITHROMYCIN [Concomitant]
  4. CABERGOLINE [Concomitant]
  5. AMOXICILLIN [Concomitant]

REACTIONS (3)
  - GASTRITIS ATROPHIC [None]
  - HYPERGASTRINAEMIA [None]
  - NEUROENDOCRINE TUMOUR [None]
